FAERS Safety Report 20873067 (Version 1)
Quarter: 2022Q2

REPORT INFORMATION
  Report Type: Spontaneous
  Country: US (occurrence: US)
  Receive Date: 20220525
  Receipt Date: 20220525
  Transmission Date: 20220721
  Serious: Yes (Other)
  Sender: FDA-Public Use
  Company Number: US-PFIZER INC-202200724750

PATIENT
  Age: 13 Year
  Sex: Female

DRUGS (1)
  1. ALDACTONE [Suspect]
     Active Substance: SPIRONOLACTONE
     Indication: Acne
     Dosage: UNK

REACTIONS (5)
  - Growth retardation [Unknown]
  - Endocrine disorder [Unknown]
  - Menstrual disorder [Unknown]
  - Off label use [Unknown]
  - Off label use [Unknown]
